FAERS Safety Report 9953767 (Version 1)
Quarter: 2014Q1

REPORT INFORMATION
  Report Type: Spontaneous
  Country: US (occurrence: US)
  Receive Date: 20140304
  Receipt Date: 20140304
  Transmission Date: 20141002
  Serious: Yes (Other)
  Sender: FDA-Public Use
  Company Number: US-ABBVIE-13P-163-1081077-00

PATIENT
  Sex: 0

DRUGS (2)
  1. HUMIRA [Suspect]
     Indication: PSORIASIS
  2. ENBREL [Suspect]
     Indication: PSORIASIS

REACTIONS (4)
  - Necrotising fasciitis [Unknown]
  - Psoriasis [Unknown]
  - Furuncle [Unknown]
  - Liver disorder [Unknown]
